APPROVED DRUG PRODUCT: RISEDRONATE SODIUM
Active Ingredient: RISEDRONATE SODIUM
Strength: 35MG
Dosage Form/Route: TABLET;ORAL
Application: A090877 | Product #001 | TE Code: AB
Applicant: APOTEX INC
Approved: Nov 30, 2015 | RLD: No | RS: No | Type: RX